FAERS Safety Report 5161677-9 (Version None)
Quarter: 2006Q4

REPORT INFORMATION
  Report Type: 
  Country: None (occurrence: None)
  Receive Date: 20061130
  Receipt Date: 20060504
  Transmission Date: 20070319
  Serious: No
  Sender: FDA-Public Use
  Company Number: US-BRISTOL-MYERS SQUIBB COMPANY-13367271

PATIENT
  Age: 18 Year
  Sex: Female
  Weight: 82 kg

DRUGS (2)
  1. GLUCOPHAGE XR [Suspect]
     Indication: INSULIN RESISTANCE
     Route: 048
     Dates: start: 20060410
  2. YASMIN [Concomitant]

REACTIONS (1)
  - VOMITING [None]
